FAERS Safety Report 9764644 (Version 1)
Quarter: 2013Q4

REPORT INFORMATION
  Report Type: Spontaneous
  Country: US (occurrence: None)
  Receive Date: 20131213
  Receipt Date: 20131213
  Transmission Date: 20140711
  Serious: Yes (Other)
  Sender: FDA-Public Use
  Company Number: 2013SA031725

PATIENT
  Age: 70 Year
  Sex: Female

DRUGS (4)
  1. MENTHOL [Suspect]
     Indication: MUSCLE STRAIN
     Route: 061
     Dates: start: 20080122, end: 20080123
  2. MULTIVITAMINS [Concomitant]
  3. BENICAR [Concomitant]
  4. ANTIHYPERTENSIVES [Concomitant]

REACTIONS (9)
  - Chemical injury [None]
  - Blister [None]
  - Burns second degree [None]
  - Scar [None]
  - Rash pruritic [None]
  - Exfoliative rash [None]
  - Wound secretion [None]
  - Scab [None]
  - Product quality issue [None]
